FAERS Safety Report 6898978-X (Version None)
Quarter: 2010Q3

REPORT INFORMATION
  Report Type: 
  Country: None (occurrence: None)
  Receive Date: 20100802
  Receipt Date: 20071214
  Transmission Date: 20110219
  Serious: Yes (Other)
  Sender: FDA-Public Use
  Company Number: US-PFIZER INC-2007096221

PATIENT
  Sex: Female
  Weight: 103 kg

DRUGS (13)
  1. LYRICA [Suspect]
     Indication: DIABETIC NEUROPATHY
     Route: 048
     Dates: start: 20071108
  2. MAGNESIUM GLUCONATE [Suspect]
     Indication: HYPOMAGNESAEMIA
     Dates: start: 20071108, end: 20071112
  3. LANTUS [Concomitant]
  4. NOVOLIN R [Concomitant]
  5. WELLBUTRIN XL [Concomitant]
  6. ALL OTHER THERAPEUTIC PRODUCTS [Concomitant]
     Indication: ANXIETY
  7. ALL OTHER THERAPEUTIC PRODUCTS [Concomitant]
     Indication: PANIC ATTACK
  8. SEROQUEL [Concomitant]
  9. ALL OTHER THERAPEUTIC PRODUCTS [Concomitant]
  10. PROTONIX [Concomitant]
  11. REGLAN [Concomitant]
  12. ZOFRAN [Concomitant]
  13. PREVACID [Concomitant]

REACTIONS (2)
  - DIARRHOEA [None]
  - PRURITUS [None]
